FAERS Safety Report 8127390-0 (Version None)
Quarter: 2012Q1

REPORT INFORMATION
  Report Type: 
  Country: None (occurrence: None)
  Receive Date: 20120210
  Receipt Date: 20091102
  Transmission Date: 20120608
  Serious: Yes (Hospitalization)
  Sender: FDA-Public Use
  Company Number: RU-BRISTOL-MYERS SQUIBB COMPANY-14700462

PATIENT
  Age: 66 Year
  Sex: Male

DRUGS (15)
  1. ACETYLSALICYLIC ACID SRT [Concomitant]
     Indication: HYPERTENSION
     Route: 048
     Dates: start: 20051101
  2. BISOPROLOL FUMARATE [Concomitant]
     Indication: CARDIAC FAILURE CONGESTIVE
     Route: 048
     Dates: start: 20051101
  3. BISOPROLOL FUMARATE [Concomitant]
     Indication: HYPERTENSION
     Route: 048
     Dates: start: 20051101
  4. LISINOPRIL [Concomitant]
     Indication: HYPERTENSION
     Dosage: ALSO TAKEN FROM 18MAR09.
     Route: 048
     Dates: start: 20051101
  5. FOSINOPRIL SODIUM [Concomitant]
     Indication: HYPERTENSION
     Route: 048
     Dates: start: 20090701, end: 20090716
  6. AMLODIPINE [Concomitant]
     Indication: CARDIAC FAILURE CONGESTIVE
     Route: 048
     Dates: start: 20051101
  7. FUROSEMIDE [Concomitant]
     Indication: RENAL IMPAIRMENT
     Route: 048
     Dates: start: 20090318, end: 20090701
  8. INSULIN ACTRAPID [Suspect]
     Indication: TYPE 2 DIABETES MELLITUS
     Route: 058
     Dates: start: 20070716
  9. SIMVASTATIN [Concomitant]
     Indication: DYSLIPIDAEMIA
     Route: 048
     Dates: start: 20051001
  10. ISOSORBIDE MONONITRATE [Concomitant]
     Indication: CARDIAC FAILURE CONGESTIVE
     Route: 048
     Dates: start: 20051101
  11. ISOSORBIDE MONONITRATE [Concomitant]
     Indication: ANGINA PECTORIS
     Route: 048
     Dates: start: 20051101
  12. SAXAGLIPTIN [Suspect]
     Indication: TYPE 2 DIABETES MELLITUS
     Route: 048
     Dates: start: 20081208, end: 20090323
  13. AMLODIPINE [Concomitant]
     Indication: HYPERTENSION
     Route: 048
     Dates: start: 20051101
  14. INSULIN PROTAPHANE NPH [Suspect]
     Indication: TYPE 2 DIABETES MELLITUS
     Dosage: 52 IU FROM 01JUL09 GIVEN.
     Route: 058
     Dates: start: 20070716
  15. ACETYLSALICYLIC ACID SRT [Concomitant]
     Indication: CARDIAC FAILURE CONGESTIVE
     Route: 048
     Dates: start: 20051101

REACTIONS (1)
  - BLOOD GLUCOSE INCREASED [None]
